FAERS Safety Report 5563332-X (Version None)
Quarter: 2007Q4

REPORT INFORMATION
  Report Type: 
  Country: None (occurrence: None)
  Receive Date: 20071212
  Receipt Date: 20071130
  Transmission Date: 20080405
  Serious: Yes (Other)
  Sender: FDA-Public Use
  Company Number: CERZ-11978

PATIENT
  Age: 11 Year
  Sex: Female

DRUGS (6)
  1. CEREZYME [Suspect]
     Indication: GAUCHER'S DISEASE
     Dosage: 50 U/KG Q2WKS IV
     Route: 042
     Dates: start: 20011018
  2. CIPROFLOXACIN HCL [Concomitant]
  3. LORTAB [Concomitant]
  4. TYLENOL [Concomitant]
  5. MOTRIN [Concomitant]
  6. ALEVE [Concomitant]

REACTIONS (15)
  - COMPLEX REGIONAL PAIN SYNDROME [None]
  - EOSINOPHIL COUNT INCREASED [None]
  - EYELID OEDEMA [None]
  - HYPERHIDROSIS [None]
  - MENTAL DISORDER [None]
  - NO THERAPEUTIC RESPONSE [None]
  - OEDEMA PERIPHERAL [None]
  - PAIN [None]
  - PAIN IN EXTREMITY [None]
  - PARAESTHESIA [None]
  - PRURITUS [None]
  - RASH [None]
  - SKIN DISCOLOURATION [None]
  - SLEEP DISORDER [None]
  - THERAPEUTIC PRODUCT CONTAMINATION [None]
